FAERS Safety Report 23832023 (Version 1)
Quarter: 2024Q2

REPORT INFORMATION
  Report Type: Report from Study
  Country: US (occurrence: US)
  Receive Date: 20240508
  Receipt Date: 20240508
  Transmission Date: 20240716
  Serious: Yes (Hospitalization)
  Sender: FDA-Public Use
  Company Number: US-ABBVIE-5745221

PATIENT
  Age: 48 Year
  Sex: Female

DRUGS (1)
  1. SKYRIZI [Suspect]
     Active Substance: RISANKIZUMAB-RZAA
     Indication: Psoriasis
     Route: 058
     Dates: start: 20240308, end: 202404

REACTIONS (4)
  - Lung disorder [Recovering/Resolving]
  - Cardiac failure congestive [Recovering/Resolving]
  - Transient ischaemic attack [Unknown]
  - Tobacco user [Recovering/Resolving]

NARRATIVE: CASE EVENT DATE: 20240401
